FAERS Safety Report 5909515-8 (Version None)
Quarter: 2008Q4

REPORT INFORMATION
  Report Type: 
  Country: None (occurrence: None)
  Receive Date: 20081002
  Receipt Date: 20080917
  Transmission Date: 20090506
  Serious: Yes (Hospitalization)
  Sender: FDA-Public Use
  Company Number: 20216

PATIENT
  Age: 46 Year
  Sex: Male

DRUGS (7)
  1. VINCRISTINE [Suspect]
  2. METHOTREXATE [Suspect]
     Indication: PROPHYLAXIS
     Dosage: 12 MG IT
     Route: 038
  3. DOXORUBICIN HCL [Suspect]
  4. CYCLOPHOSPHAMIDE [Suspect]
  5. PREDNISOLONE [Suspect]
  6. PREDNISONE TAB [Suspect]
  7. RITUXIMAB [Suspect]

REACTIONS (8)
  - BK VIRUS INFECTION [None]
  - CSF VIRUS IDENTIFIED [None]
  - DIPLOPIA [None]
  - HEADACHE [None]
  - NERVOUS SYSTEM DISORDER [None]
  - TINNITUS [None]
  - VIRUS BODY FLUID IDENTIFIED [None]
  - VITH NERVE DISORDER [None]
